FAERS Safety Report 6683872-X (Version None)
Quarter: 2010Q2

REPORT INFORMATION
  Report Type: 
  Country: None (occurrence: None)
  Receive Date: 20100416
  Receipt Date: 20100405
  Transmission Date: 20101027
  Serious: Yes (Life-Threatening, Hospitalization)
  Sender: FDA-Public Use
  Company Number: JP-JNJFOC-20100205534

PATIENT
  Sex: Female
  Weight: 67 kg

DRUGS (9)
  1. DOXORUBICIN HCL [Suspect]
     Indication: OVARIAN CANCER RECURRENT
     Route: 042
  2. DOXORUBICIN HCL [Suspect]
     Route: 042
  3. DOXORUBICIN HCL [Suspect]
     Route: 042
  4. LOXONIN [Concomitant]
     Route: 048
  5. THYRADIN S [Concomitant]
     Route: 048
  6. MARZULENE-S [Concomitant]
     Route: 048
  7. AZUNOL [Concomitant]
     Indication: PROPHYLAXIS
     Route: 049
  8. FLAVITAN [Concomitant]
     Indication: PROPHYLAXIS
     Route: 048
  9. PYDOXAL [Concomitant]
     Indication: PROPHYLAXIS
     Route: 048

REACTIONS (2)
  - LIVER FUNCTION TEST ABNORMAL [None]
  - PLATELET COUNT DECREASED [None]
